FAERS Safety Report 8363599-9 (Version None)
Quarter: 2012Q2

REPORT INFORMATION
  Report Type: 
  Country: None (occurrence: None)
  Receive Date: 20120516
  Receipt Date: 20120511
  Transmission Date: 20120825
  Serious: Yes (Hospitalization, Other)
  Sender: FDA-Public Use
  Company Number: US-PFIZER INC-2012115711

PATIENT
  Sex: Male
  Weight: 90.703 kg

DRUGS (2)
  1. XANAX [Suspect]
     Indication: ANXIETY
  2. XANAX [Suspect]
     Indication: BIPOLAR DISORDER
     Dosage: 2 MG, 2X/DAY

REACTIONS (7)
  - DYSARTHRIA [None]
  - PARALYSIS [None]
  - TRANSIENT ISCHAEMIC ATTACK [None]
  - MYOCARDIAL INFARCTION [None]
  - ULCER HAEMORRHAGE [None]
  - CEREBROVASCULAR ACCIDENT [None]
  - GRAND MAL CONVULSION [None]
